FAERS Safety Report 11112026 (Version 1)
Quarter: 2015Q2

REPORT INFORMATION
  Report Type: Spontaneous
  Country: US (occurrence: None)
  Receive Date: 20150512
  Receipt Date: 20150512
  Transmission Date: 20150821
  Serious: Yes (Disabling, Other)
  Sender: FDA-Public Use
  Company Number: 2015SCAL000195

PATIENT
  Age: 65 Year
  Sex: Male

DRUGS (4)
  1. TOPIRAMATE (TOPIRAMATE) [Suspect]
     Active Substance: TOPIRAMATE
     Indication: EPILEPSY
  2. LEVETIRACETAM (LEVETIRACETAM) [Suspect]
     Active Substance: LEVETIRACETAM
     Indication: EPILEPSY
  3. LAMOTRIGINE (LAMOTRIGINE) [Suspect]
     Active Substance: LAMOTRIGINE
     Indication: EPILEPSY
  4. VALPROIC ACID (VALPROIC ACID) [Suspect]
     Active Substance: VALPROIC ACID
     Indication: EPILEPSY

REACTIONS (2)
  - Fall [None]
  - Gait disturbance [None]
